FAERS Safety Report 6550932-3 (Version None)
Quarter: 2010Q1

REPORT INFORMATION
  Report Type: 
  Country: None (occurrence: None)
  Receive Date: 20100125
  Receipt Date: 20100115
  Transmission Date: 20100710
  Serious: Yes (Hospitalization)
  Sender: FDA-Public Use
  Company Number: US-PFIZER INC-2010008546

PATIENT
  Sex: Female
  Weight: 54.431 kg

DRUGS (6)
  1. LYRICA [Suspect]
     Indication: FIBROMYALGIA
     Dosage: 75 MG, 2X/DAY
     Dates: start: 20090101
  2. LYRICA [Suspect]
     Dosage: 150 MG, 2X/DAY
     Dates: start: 20090101
  3. FLEXERIL [Concomitant]
     Dosage: 10 MG, 3X/DAY
  4. NEXIUM [Concomitant]
     Dosage: 40 MG, 1X/DAY
  5. CYMBALTA [Concomitant]
     Dosage: 60 MG, 1X/DAY
  6. HYDROCODONE [Concomitant]
     Dosage: 5/500 (1 TABLET) ONE TO TWO TABS  EVERY 6 HOURS

REACTIONS (3)
  - AMNESIA [None]
  - DYSPHEMIA [None]
  - INTERVERTEBRAL DISC PROTRUSION [None]
